FAERS Safety Report 12916444 (Version 1)
Quarter: 2016Q4

REPORT INFORMATION
  Report Type: Spontaneous
  Country: US (occurrence: US)
  Receive Date: 20161107
  Receipt Date: 20161107
  Transmission Date: 20170207
  Serious: No
  Sender: FDA-Public Use
  Company Number: US-009507513-1610USA016572

PATIENT
  Age: 82 Year
  Sex: Male
  Weight: 99.79 kg

DRUGS (12)
  1. CHILDRENS ROBITUSSIN COUGH AND CHEST CONGESTION DM [Suspect]
     Active Substance: DEXTROMETHORPHAN HYDROBROMIDE\GUAIFENESIN
     Indication: RESPIRATORY TRACT CONGESTION
     Dosage: 10 LIQUID, EVERY FOUR HOURS
     Route: 048
     Dates: start: 20161010, end: 20161010
  2. PRAVASTATIN. [Suspect]
     Active Substance: PRAVASTATIN
     Dosage: ONE JUST BEFORE GOING TO BED
  3. MYRBETRIQ [Suspect]
     Active Substance: MIRABEGRON
     Dosage: 50 MG, DAILY IN THE MORNING
     Route: 048
  4. WARFARIN [Suspect]
     Active Substance: WARFARIN
     Dosage: TOOK 5 MG ON MONDAY, WEDNESDAY, AND FRIDAY
     Route: 048
  5. DIGOXIN. [Suspect]
     Active Substance: DIGOXIN
     Dosage: 0.125 MG, IN THE MORNING
     Route: 048
  6. RAMIPRIL. [Suspect]
     Active Substance: RAMIPRIL
     Dosage: 10 MG, IN THE MORNING
     Route: 048
  7. JANUVIA [Suspect]
     Active Substance: SITAGLIPTIN PHOSPHATE
     Dosage: 100 MG, QD
     Route: 048
  8. TRAZODONE HYDROCHLORIDE. [Suspect]
     Active Substance: TRAZODONE HYDROCHLORIDE
     Dosage: ONE TABLET BEFORE GOING TO BED
     Route: 048
  9. GLIMEPIRIDE. [Suspect]
     Active Substance: GLIMEPIRIDE
     Dosage: ONE IN THE MORNING AND ONE AT NIGHT BEFORE GOING TO BAD
     Route: 048
  10. BYSTOLIC [Suspect]
     Active Substance: NEBIVOLOL HYDROCHLORIDE
     Dosage: ONE TABLET BEFORE GOING TO BED
     Route: 048
  11. WARFARIN [Suspect]
     Active Substance: WARFARIN
     Dosage: 7.5MG ON SUNDAY, TUESDAY, THURSDAY AND SATURDAY
     Route: 048
  12. CHILDRENS ROBITUSSIN COUGH AND CHEST CONGESTION DM [Suspect]
     Active Substance: DEXTROMETHORPHAN HYDROBROMIDE\GUAIFENESIN
     Indication: COUGH

REACTIONS (1)
  - Diarrhoea [Unknown]

NARRATIVE: CASE EVENT DATE: 20161011
